FAERS Safety Report 6732843-3 (Version None)
Quarter: 2010Q2

REPORT INFORMATION
  Report Type: 
  Country: None (occurrence: None)
  Receive Date: 20100519
  Receipt Date: 20100507
  Transmission Date: 20101027
  Serious: Yes (Hospitalization)
  Sender: FDA-Public Use
  Company Number: SE-ELI_LILLY_AND_COMPANY-SE201005002072

PATIENT
  Sex: Male

DRUGS (6)
  1. ZYPREXA [Suspect]
     Indication: PSYCHOTIC DISORDER
     Dosage: 2.5 MG, UNK
  2. DETRUSITOL [Concomitant]
     Indication: NOCTURIA
     Dosage: 1 MG, UNK
  3. RISPERDAL [Concomitant]
     Indication: PSYCHOTIC DISORDER
     Dosage: 1 MG, UNK
  4. ERGENYL [Concomitant]
     Indication: PSYCHOTIC DISORDER
     Dosage: UNK, UNK
  5. ERGENYL [Concomitant]
     Dosage: 500 MG, UNK
  6. SALURES [Concomitant]
     Dosage: 2.5 MG, UNK

REACTIONS (6)
  - DRY MOUTH [None]
  - FALL [None]
  - GAIT DISTURBANCE [None]
  - HYPOCALCAEMIA [None]
  - PARKINSONISM [None]
  - TARDIVE DYSKINESIA [None]
